FAERS Safety Report 7064426-2 (Version None)
Quarter: 2010Q4

REPORT INFORMATION
  Report Type: 
  Country: None (occurrence: None)
  Receive Date: 20101027
  Receipt Date: 20101015
  Transmission Date: 20110411
  Serious: No
  Sender: FDA-Public Use
  Company Number: PHHY2010JP63338

PATIENT
  Sex: Male

DRUGS (3)
  1. TASIGNA [Suspect]
     Indication: CHRONIC MYELOID LEUKAEMIA
     Dosage: 800 MG
     Route: 048
     Dates: start: 20090413, end: 20090611
  2. TASIGNA [Suspect]
     Dosage: 800 MG
     Route: 048
     Dates: start: 20090620
  3. PREDNISOLONE [Concomitant]
     Dosage: 5 MG
     Route: 048

REACTIONS (4)
  - DRUG INEFFECTIVE [None]
  - ELECTROCARDIOGRAM QT PROLONGED [None]
  - FATIGUE [None]
  - MALAISE [None]
